FAERS Safety Report 5608945-1 (Version None)
Quarter: 2008Q1

REPORT INFORMATION
  Report Type: 
  Country: None (occurrence: None)
  Receive Date: 20080129
  Receipt Date: 20080129
  Transmission Date: 20080703
  Serious: Yes (Other)
  Sender: FDA-Public Use
  Company Number: None

PATIENT
  Age: 32 Year
  Sex: Female
  Weight: 70 kg

DRUGS (2)
  1. AVELOX [Suspect]
     Indication: INFLUENZA
     Dosage: 400MG  EVERY 24 HOURS  PO
     Route: 048
     Dates: start: 20080117, end: 20080123
  2. AVELOX [Suspect]
     Indication: NASOPHARYNGITIS
     Dosage: 400MG  EVERY 24 HOURS  PO
     Route: 048
     Dates: start: 20080117, end: 20080123

REACTIONS (6)
  - BODY TEMPERATURE INCREASED [None]
  - DECREASED INTEREST [None]
  - DEPRESSION [None]
  - HEADACHE [None]
  - ORAL INTAKE REDUCED [None]
  - PRODUCTIVE COUGH [None]
